FAERS Safety Report 4992517-6 (Version None)
Quarter: 2006Q2

REPORT INFORMATION
  Report Type: 
  Country: None (occurrence: None)
  Receive Date: 20060502
  Receipt Date: 20060417
  Transmission Date: 20061013
  Serious: Yes (Other)
  Sender: FDA-Public Use
  Company Number: BR-2006-009096

PATIENT
  Age: 30 Year
  Sex: Female

DRUGS (1)
  1. BETASERON [Suspect]
     Indication: MULTIPLE SCLEROSIS
     Dosage: UNK MIU, UNK, SUBCUTANEOUS 250UG
     Route: 058
     Dates: start: 20060101

REACTIONS (7)
  - ANXIETY [None]
  - CHROMATOPSIA [None]
  - DIZZINESS [None]
  - HEADACHE [None]
  - NECK PAIN [None]
  - NERVOUSNESS [None]
  - SHOULDER PAIN [None]
